FAERS Safety Report 12797641 (Version 1)
Quarter: 2016Q3

REPORT INFORMATION
  Report Type: Spontaneous
  Country: US (occurrence: US)
  Receive Date: 20160929
  Receipt Date: 20160929
  Transmission Date: 20161109
  Serious: Yes (Disabling)
  Sender: FDA-Public Use
  Company Number: None

PATIENT
  Age: 57 Year
  Sex: Female
  Weight: 76.5 kg

DRUGS (2)
  1. HYOSCYAMINE SULFATE 0.125 MG VIRTUS [Suspect]
     Active Substance: HYOSCYAMINE SULFATE
     Indication: CHEST PAIN
     Dosage: ?          QUANTITY:120 TABLET(S);?
     Route: 048
     Dates: start: 20150801, end: 20160919
  2. HYOSCYAMINE SULFATE 0.125 MG VIRTUS [Suspect]
     Active Substance: HYOSCYAMINE SULFATE
     Indication: OESOPHAGEAL SPASM
     Dosage: ?          QUANTITY:120 TABLET(S);?
     Route: 048
     Dates: start: 20150801, end: 20160919

REACTIONS (3)
  - Dizziness [None]
  - Disorientation [None]
  - Confusional state [None]

NARRATIVE: CASE EVENT DATE: 20160912
